FAERS Safety Report 6035294-2 (Version None)
Quarter: 2009Q1

REPORT INFORMATION
  Report Type: 
  Country: None (occurrence: None)
  Receive Date: 20090109
  Receipt Date: 20081223
  Transmission Date: 20090719
  Serious: Yes (Death)
  Sender: FDA-Public Use
  Company Number: IDA-00172

PATIENT
  Age: 52 Year
  Sex: Male

DRUGS (4)
  1. PROPRANOLOL [Suspect]
     Dosage: DAILY, ORAL FORMULATION
     Route: 048
  2. METOPROLOL TARTRATE [Suspect]
     Dosage: DAILY, ORAL FORMULATION
     Route: 048
  3. VERAPAMIL [Suspect]
     Dosage: DAILY, ORAL FORMULTION
     Route: 048
  4. SERTRALINE [Suspect]
     Dosage: DAILY, ORAL FORMULATION
     Route: 048

REACTIONS (10)
  - BLOOD GLUCOSE INCREASED [None]
  - BLOOD PH DECREASED [None]
  - BRADYCARDIA [None]
  - COMPLETED SUICIDE [None]
  - GASTROINTESTINAL SOUNDS ABNORMAL [None]
  - HYPOGLYCAEMIA [None]
  - HYPOTENSION [None]
  - INTENTIONAL DRUG MISUSE [None]
  - PERIPHERAL COLDNESS [None]
  - UNRESPONSIVE TO STIMULI [None]
